FAERS Safety Report 14345092 (Version 1)
Quarter: 2018Q1

REPORT INFORMATION
  Report Type: Spontaneous
  Country: US (occurrence: US)
  Receive Date: 20180103
  Receipt Date: 20180103
  Transmission Date: 20180509
  Serious: No
  Sender: FDA-Public Use
  Company Number: US-ASTRAZENECA-2017SF31697

PATIENT
  Age: 843 Month
  Sex: Female
  Weight: 45.4 kg

DRUGS (4)
  1. PREDNISONE. [Concomitant]
     Active Substance: PREDNISONE
  2. PRILOSEC [Suspect]
     Active Substance: OMEPRAZOLE MAGNESIUM
     Indication: GASTROOESOPHAGEAL REFLUX DISEASE
     Route: 048
     Dates: start: 201711, end: 20171203
  3. PRILOSEC [Suspect]
     Active Substance: OMEPRAZOLE MAGNESIUM
     Indication: GASTROOESOPHAGEAL REFLUX DISEASE
     Route: 048
     Dates: start: 2014, end: 201711
  4. PRILOSEC [Suspect]
     Active Substance: OMEPRAZOLE MAGNESIUM
     Indication: GASTROOESOPHAGEAL REFLUX DISEASE
     Route: 048
     Dates: start: 20171204

REACTIONS (7)
  - Dyspepsia [Unknown]
  - Myalgia [Unknown]
  - Dizziness [Unknown]
  - Arthropathy [Unknown]
  - Gastrointestinal disorder [Unknown]
  - Dry mouth [Unknown]
  - Prescribed overdose [Unknown]

NARRATIVE: CASE EVENT DATE: 201706
